FAERS Safety Report 6859308-2 (Version None)
Quarter: 2010Q3

REPORT INFORMATION
  Report Type: 
  Country: None (occurrence: None)
  Receive Date: 20100719
  Receipt Date: 20080223
  Transmission Date: 20110219
  Serious: Yes (Other)
  Sender: FDA-Public Use
  Company Number: US-PFIZER INC-2008017910

PATIENT
  Sex: Male
  Weight: 95.3 kg

DRUGS (14)
  1. CHANTIX [Suspect]
     Indication: SMOKING CESSATION THERAPY
     Dates: start: 20070801
  2. FOSAMPRENAVIR [Concomitant]
  3. TRIZIVIR [Concomitant]
  4. NORVIR [Concomitant]
  5. SITAGLIPTIN [Concomitant]
  6. METFORMIN HCL [Concomitant]
  7. STARLIX [Concomitant]
  8. DILTIAZEM [Concomitant]
  9. KLOR-CON [Concomitant]
  10. MONTELUKAST SODIUM [Concomitant]
  11. CELEBREX [Concomitant]
  12. LIPITOR [Concomitant]
  13. ACETYLSALICYLIC ACID [Concomitant]
  14. MULTI-VITAMINS [Concomitant]

REACTIONS (6)
  - ABNORMAL DREAMS [None]
  - BLOOD GLUCOSE INCREASED [None]
  - FATIGUE [None]
  - HYPERPHAGIA [None]
  - INTENTIONAL DRUG MISUSE [None]
  - SLEEP DISORDER [None]
